FAERS Safety Report 15051714 (Version 1)
Quarter: 2018Q3

REPORT INFORMATION
  Report Type: Spontaneous
  Country: SE (occurrence: SE)
  Receive Date: 20180622
  Receipt Date: 20180622
  Transmission Date: 20181010
  Serious: Yes (Other)
  Sender: FDA-Public Use
  Company Number: SE-MYLANLABS-2018M1014811

PATIENT
  Sex: Male

DRUGS (1)
  1. FENANTOIN MEDA 100 MG TABLETTER [Suspect]
     Active Substance: PHENYTOIN
     Indication: EPILEPSY
     Dosage: UNK

REACTIONS (8)
  - Dizziness [Unknown]
  - Muscle spasms [Unknown]
  - Alopecia [Unknown]
  - Myoclonus [Unknown]
  - Balance disorder [Unknown]
  - Osteoporosis [Unknown]
  - Neuropathy peripheral [Unknown]
  - Back pain [Unknown]
